FAERS Safety Report 10048001 (Version 1)
Quarter: 2014Q1

REPORT INFORMATION
  Report Type: Report from Study
  Country: US (occurrence: US)
  Receive Date: 20140331
  Receipt Date: 20140331
  Transmission Date: 20141002
  Serious: Yes (Hospitalization)
  Sender: FDA-Public Use
  Company Number: PHHO2014US004453

PATIENT
  Age: 65 Year
  Sex: Female
  Weight: 64.22 kg

DRUGS (3)
  1. BYL719 [Suspect]
     Dosage: 300 MG, QD
     Route: 048
     Dates: start: 20131227, end: 20140116
  2. AMG479 [Suspect]
     Dosage: 12 MG/KG, Q2WEEKS
     Route: 042
     Dates: start: 20131227, end: 20140110
  3. METFORMIN [Suspect]
     Indication: HYPERGLYCAEMIA
     Dosage: 500 MG, BID
     Dates: start: 20140103, end: 201401

REACTIONS (2)
  - Renal failure acute [Not Recovered/Not Resolved]
  - Hyperuricaemia [Not Recovered/Not Resolved]
